FAERS Safety Report 6417971-4 (Version None)
Quarter: 2009Q4

REPORT INFORMATION
  Report Type: 
  Country: None (occurrence: None)
  Receive Date: 20091028
  Receipt Date: 20091015
  Transmission Date: 20100525
  Serious: Yes (Hospitalization)
  Sender: FDA-Public Use
  Company Number: US-MERCK-0910USA02465

PATIENT
  Age: 68 Year
  Sex: Female

DRUGS (3)
  1. DECADRON [Suspect]
     Route: 048
  2. SULFAMETHOXAZOLE AND TRIMETHOPRIM [Suspect]
     Indication: PROPHYLAXIS
     Route: 065
  3. TEMOZOLOMIDE [Suspect]
     Indication: BRAIN NEOPLASM
     Route: 065

REACTIONS (4)
  - CYTOMEGALOVIRUS COLITIS [None]
  - IMMUNOSUPPRESSION [None]
  - ORAL CANDIDIASIS [None]
  - ORAL HERPES [None]
